FAERS Safety Report 9602802 (Version 2)
Quarter: 2013Q4

REPORT INFORMATION
  Report Type: Spontaneous
  Country: US (occurrence: None)
  Receive Date: 20131003
  Receipt Date: 20131205
  Transmission Date: 20140711
  Serious: Yes (Hospitalization)
  Sender: FDA-Public Use
  Company Number: KAD201308-001108

PATIENT
  Age: 54 Year
  Sex: Male

DRUGS (3)
  1. RIBAVIRIN [Suspect]
     Indication: HEPATITIS C
  2. PEGINTERFERON ALFA-2A [Suspect]
     Indication: HEPATITIS C
     Route: 058
  3. TELAPREVIR [Suspect]
     Indication: HEPATITIS C

REACTIONS (3)
  - Viral load increased [None]
  - Diabetic ketoacidosis [None]
  - Type 1 diabetes mellitus [None]
